FAERS Safety Report 4500002-0 (Version None)
Quarter: 2004Q4

REPORT INFORMATION
  Report Type: 
  Country: None (occurrence: None)
  Receive Date: 20041112
  Receipt Date: 20041105
  Transmission Date: 20050328
  Serious: Yes (Other)
  Sender: FDA-Public Use
  Company Number: GB-BRISTOL-MYERS SQUIBB COMPANY-12756920

PATIENT
  Age: 59 Year
  Sex: Female
  Weight: 76 kg

DRUGS (2)
  1. IRBESARTAN [Suspect]
     Indication: HYPERTENSION
     Route: 048
     Dates: start: 20040621, end: 20041020
  2. GLUCOSAMINE [Concomitant]
     Indication: MUSCULOSKELETAL STIFFNESS
     Dates: start: 20040701

REACTIONS (3)
  - DEPRESSED MOOD [None]
  - LETHARGY [None]
  - MUSCULOSKELETAL STIFFNESS [None]
